FAERS Safety Report 5047177-5 (Version None)
Quarter: 2006Q3

REPORT INFORMATION
  Report Type: 
  Country: None (occurrence: None)
  Receive Date: 20060703
  Receipt Date: 20060621
  Transmission Date: 20061208
  Serious: Yes (Other)
  Sender: FDA-Public Use
  Company Number: 2006038683

PATIENT
  Age: 17 Year
  Sex: Female
  Weight: 58.9676 kg

DRUGS (1)
  1. NASALCROM [Suspect]
     Indication: NASAL CONGESTION
     Dosage: 1 SPRAY IN EACH PASSAGE ONCE, NASAL
     Route: 045
     Dates: start: 20060318, end: 20060318

REACTIONS (4)
  - DYSPNOEA [None]
  - HYPERSENSITIVITY [None]
  - SWELLING FACE [None]
  - URTICARIA GENERALISED [None]
